FAERS Safety Report 6609092-2 (Version None)
Quarter: 2010Q1

REPORT INFORMATION
  Report Type: 
  Country: None (occurrence: None)
  Receive Date: 20100226
  Receipt Date: 20100226
  Transmission Date: 20100710
  Serious: Yes (Death, Hospitalization)
  Sender: FDA-Public Use
  Company Number: None

PATIENT
  Age: 69 Year
  Sex: Male
  Weight: 85 kg

DRUGS (2)
  1. RAFAMPIN UNK UNK [Suspect]
     Indication: TUBERCULOSIS
     Dosage: UNK UNK ORAL 047
     Route: 048
  2. ISONIAZID UNK UNK [Suspect]
     Indication: TUBERCULOSIS
     Dosage: UNK UNK 047 ORAL
     Route: 048

REACTIONS (10)
  - CHROMATURIA [None]
  - COAGULOPATHY [None]
  - DISSEMINATED INTRAVASCULAR COAGULATION [None]
  - HYPOGLYCAEMIA [None]
  - JAUNDICE [None]
  - LACTIC ACIDOSIS [None]
  - MALAISE [None]
  - MENTAL STATUS CHANGES [None]
  - NAUSEA [None]
  - SUPRAVENTRICULAR TACHYCARDIA [None]
